FAERS Safety Report 15239946 (Version 2)
Quarter: 2018Q3

REPORT INFORMATION
  Report Type: Spontaneous
  Country: TW (occurrence: TW)
  Receive Date: 20180803
  Receipt Date: 20180820
  Transmission Date: 20181010
  Serious: Yes (Other)
  Sender: FDA-Public Use
  Company Number: TW-B.I. PHARMACEUTICALS,INC./RIDGEFIELD-2018-BI-039546

PATIENT
  Age: 58 Year
  Sex: Male

DRUGS (2)
  1. TAMSULOSINA [Suspect]
     Active Substance: TAMSULOSIN HYDROCHLORIDE
     Dosage: MODIFIED?RELEASE TABLET
     Route: 048
     Dates: start: 2018
  2. TAMSULOSINA [Suspect]
     Active Substance: TAMSULOSIN HYDROCHLORIDE
     Indication: BENIGN PROSTATIC HYPERPLASIA
     Dosage: MODIFIED?RELEASE TABLET
     Route: 048
     Dates: start: 2016, end: 2018

REACTIONS (3)
  - Urinary retention [Recovering/Resolving]
  - Drug tolerance [Unknown]
  - Overdose [Unknown]

NARRATIVE: CASE EVENT DATE: 2018
